FAERS Safety Report 5759306-6 (Version None)
Quarter: 2008Q2

REPORT INFORMATION
  Report Type: 
  Country: None (occurrence: None)
  Receive Date: 20080605
  Receipt Date: 20080602
  Transmission Date: 20081010
  Serious: Yes (Life-Threatening, Hospitalization)
  Sender: FDA-Public Use
  Company Number: DE-SP-2008-01090

PATIENT
  Age: 67 Year
  Sex: Male
  Weight: 82 kg

DRUGS (2)
  1. IMMUCYST [Suspect]
     Indication: BLADDER CANCER
     Dosage: NOT REPORTED
     Route: 043
     Dates: start: 20070626, end: 20070710
  2. MARCUMAR [Concomitant]

REACTIONS (10)
  - DYSPNOEA [None]
  - HEPATITIS [None]
  - HYPERSENSITIVITY [None]
  - JOINT SWELLING [None]
  - MYALGIA [None]
  - NIGHT SWEATS [None]
  - PLEURISY [None]
  - POLYARTHRITIS [None]
  - PYREXIA [None]
  - TACHYCARDIA [None]
